FAERS Safety Report 5147955-8 (Version None)
Quarter: 2006Q4

REPORT INFORMATION
  Report Type: 
  Country: None (occurrence: None)
  Receive Date: 20061106
  Receipt Date: 20061023
  Transmission Date: 20070319
  Serious: Yes (Disabling)
  Sender: FDA-Public Use
  Company Number: ABAZG-06-0515

PATIENT
  Age: 55 Year
  Sex: Female

DRUGS (2)
  1. ABRAXANE [Suspect]
     Indication: BREAST CANCER STAGE IV
     Dosage: 14 CYCLES COMPLETED (260 MG/M2, EVERY 3-WKS); INTRAVENOUS
     Route: 042
     Dates: start: 20060316, end: 20061012
  2. VITAMIN A [Concomitant]

REACTIONS (4)
  - ASTHENIA [None]
  - EYELID FUNCTION DISORDER [None]
  - FACIAL PALSY [None]
  - NEUROPATHY [None]
